FAERS Safety Report 5853268-9 (Version None)
Quarter: 2008Q3

REPORT INFORMATION
  Report Type: 
  Country: None (occurrence: None)
  Receive Date: 20080820
  Receipt Date: 20080814
  Transmission Date: 20090109
  Serious: Yes (Hospitalization)
  Sender: FDA-Public Use
  Company Number: TPA2008A01289

PATIENT
  Age: 67 Year
  Sex: Male
  Weight: 94.3482 kg

DRUGS (11)
  1. PIOGLITAZONE HCL [Suspect]
     Indication: CEREBROVASCULAR ACCIDENT PROPHYLAXIS
     Dosage: 1 IN 1 D; PER ORAL,
     Route: 048
     Dates: start: 20061211
  2. PIOGLITAZONE HCL [Suspect]
     Indication: CEREBROVASCULAR ACCIDENT PROPHYLAXIS
     Dosage: 1 IN 1 D; PER ORAL,
     Route: 048
     Dates: start: 20080425
  3. WARFARIN SODIUM [Concomitant]
  4. DEPAKOTE ER [Concomitant]
  5. EFFEXOR XR [Concomitant]
  6. LIPITOR [Concomitant]
  7. LOTREL [Concomitant]
  8. NEXIUM [Concomitant]
  9. ASPIRIN [Concomitant]
  10. ATENOLOL [Concomitant]
  11. PLAVIX [Concomitant]

REACTIONS (5)
  - FALL [None]
  - MOBILITY DECREASED [None]
  - PARAESTHESIA [None]
  - PELVIC PAIN [None]
  - PUBIC RAMI FRACTURE [None]
